FAERS Safety Report 25022739 (Version 4)
Quarter: 2025Q1

REPORT INFORMATION
  Report Type: Spontaneous
  Country: US (occurrence: US)
  Receive Date: 20250228
  Receipt Date: 20250306
  Transmission Date: 20250409
  Serious: Yes (Hospitalization, Other)
  Sender: ALEXION PHARMACEUTICALS
  Company Number: US-AstraZeneca-CH-00813002AP

PATIENT

DRUGS (2)
  1. AIRSUPRA [Suspect]
     Active Substance: ALBUTEROL SULFATE\BUDESONIDE
     Route: 065
  2. SYMBICORT [Suspect]
     Active Substance: BUDESONIDE\FORMOTEROL FUMARATE DIHYDRATE
     Route: 065

REACTIONS (10)
  - Muscle spasms [Unknown]
  - Iron deficiency [Unknown]
  - Aphonia [Unknown]
  - Oral candidiasis [Unknown]
  - Wrong technique in device usage process [Unknown]
  - Headache [Unknown]
  - Pneumonia [Unknown]
  - Dyspnoea [Unknown]
  - Illness [Unknown]
  - Incorrect dose administered by device [Unknown]
